FAERS Safety Report 10179179 (Version 6)
Quarter: 2016Q1

REPORT INFORMATION
  Report Type: Report from Study
  Country: JP (occurrence: JP)
  Receive Date: 20140519
  Receipt Date: 20160125
  Transmission Date: 20160525
  Serious: Yes (Hospitalization)
  Sender: FDA-Public Use
  Company Number: JP-SA-2014SA063211

PATIENT
  Age: 38 Year
  Sex: Male
  Weight: 61 kg

DRUGS (19)
  1. FLUDARA [Concomitant]
     Active Substance: FLUDARABINE PHOSPHATE
     Dates: start: 20110906, end: 20110911
  2. DENOSINE [Concomitant]
     Active Substance: GANCICLOVIR
     Indication: ANTIVIRAL PROPHYLAXIS
     Dates: start: 20110905, end: 20110912
  3. GRACEPTOR [Concomitant]
     Active Substance: TACROLIMUS
     Indication: PROPHYLAXIS AGAINST GRAFT VERSUS HOST DISEASE
     Dates: start: 20111025
  4. BAKTAR [Concomitant]
     Active Substance: SULFAMETHOXAZOLE\TRIMETHOPRIM
     Indication: PROPHYLAXIS
     Dates: start: 20111010
  5. CYLOCIDE [Concomitant]
     Active Substance: CYTARABINE
     Dates: start: 20110825, end: 20110905
  6. SOLDACTONE [Concomitant]
     Active Substance: CANRENOATE POTASSIUM
     Indication: PROPHYLAXIS
     Dates: start: 20110914, end: 20111013
  7. ETOPOSIDE. [Concomitant]
     Active Substance: ETOPOSIDE
     Dates: start: 20110825, end: 20110905
  8. ALKERAN [Concomitant]
     Active Substance: MELPHALAN
     Dates: start: 20110904, end: 20110911
  9. MAXIPIME [Concomitant]
     Active Substance: CEFEPIME HYDROCHLORIDE
     Indication: ANTIBIOTIC PROPHYLAXIS
     Dates: start: 20110907, end: 20110909
  10. FUNGUARD [Concomitant]
     Active Substance: MICAFUNGIN SODIUM
     Indication: ANTIFUNGAL PROPHYLAXIS
     Dates: start: 20110909, end: 20110927
  11. METHOTREXATE [Concomitant]
     Active Substance: METHOTREXATE
     Indication: PROPHYLAXIS AGAINST GRAFT VERSUS HOST DISEASE
     Dates: start: 20110914, end: 20110919
  12. BONALON [Concomitant]
     Active Substance: ALENDRONATE SODIUM
     Indication: OSTEOPOROSIS
     Dates: start: 20111020
  13. KYTRIL [Concomitant]
     Active Substance: GRANISETRON HYDROCHLORIDE
     Indication: PROPHYLAXIS OF NAUSEA AND VOMITING
     Dates: start: 20110825, end: 20110912
  14. PROGRAF [Concomitant]
     Active Substance: TACROLIMUS\TACROLIMUS ANHYDROUS
     Indication: PROPHYLAXIS AGAINST GRAFT VERSUS HOST DISEASE
     Dates: start: 20110910, end: 20111024
  15. THYMOGLOBULINE [Suspect]
     Active Substance: LAPINE T-LYMPHOCYTE IMMUNE GLOBULIN
     Indication: BONE MARROW CONDITIONING REGIMEN
     Route: 042
     Dates: start: 20110906, end: 20110907
  16. ACIROVEC [Concomitant]
     Active Substance: ACYCLOVIR
     Indication: ANTIVIRAL PROPHYLAXIS
     Dates: start: 20110914
  17. NIFEDIPINE. [Concomitant]
     Active Substance: NIFEDIPINE
     Indication: HYPERTENSION
     Dates: start: 20110729
  18. ETOPOSIDE. [Concomitant]
     Active Substance: ETOPOSIDE
     Dates: start: 20110909, end: 20110910
  19. UROKINASE [Concomitant]
     Active Substance: UROKINASE
     Indication: PROPHYLAXIS
     Dates: start: 20110906, end: 20110907

REACTIONS (11)
  - Capillary leak syndrome [Recovering/Resolving]
  - Coagulopathy [Recovered/Resolved]
  - Neutrophil count decreased [Recovered/Resolved]
  - Blood pressure decreased [Recovered/Resolved]
  - Cystitis haemorrhagic [Recovered/Resolved]
  - Cellulitis [Recovered/Resolved]
  - Cytokine release syndrome [Recovered/Resolved]
  - Amylase increased [Recovered/Resolved]
  - Infection [Recovered/Resolved]
  - Hepatic function abnormal [Recovered/Resolved]
  - Mucous membrane disorder [Recovered/Resolved]

NARRATIVE: CASE EVENT DATE: 20110907
